FAERS Safety Report 14592110 (Version 1)
Quarter: 2018Q1

REPORT INFORMATION
  Report Type: Spontaneous
  Country: US (occurrence: US)
  Receive Date: 20180302
  Receipt Date: 20180302
  Transmission Date: 20180509
  Serious: No
  Sender: FDA-Public Use
  Company Number: US-009507513-1802USA001517

PATIENT
  Age: 62 Year
  Sex: Male

DRUGS (1)
  1. ZERBAXA [Suspect]
     Active Substance: CEFTOLOZANE SULFATE\TAZOBACTAM SODIUM
     Indication: WOUND INFECTION PSEUDOMONAS
     Dosage: 1.5 G, Q8H
     Dates: end: 201708

REACTIONS (1)
  - Off label use [Unknown]
